FAERS Safety Report 7936021-1 (Version None)
Quarter: 2011Q4

REPORT INFORMATION
  Report Type: 
  Country: None (occurrence: None)
  Receive Date: 20111123
  Receipt Date: 20111114
  Transmission Date: 20120403
  Serious: Yes (Other)
  Sender: FDA-Public Use
  Company Number: US-BAYER-2011-044033

PATIENT
  Age: 31 Year
  Sex: Female
  Weight: 95.238 kg

DRUGS (7)
  1. YASMIN [Suspect]
     Indication: ACNE
     Dosage: UNK
     Route: 048
     Dates: start: 20050101, end: 20090501
  2. TREXIMET [Concomitant]
     Dosage: UNK
     Dates: start: 20080101
  3. PREVACID [Concomitant]
     Dosage: UNK
     Dates: start: 20090424
  4. YASMIN [Suspect]
     Indication: CONTRACEPTION
  5. DROSPIRENONE AND ETHINYL ESTRADIOL [Suspect]
     Indication: CONTRACEPTION
  6. RELPAX [Concomitant]
     Dosage: UNK
     Dates: start: 20090424
  7. DROSPIRENONE AND ETHINYL ESTRADIOL [Suspect]
     Indication: ACNE
     Dosage: UNK
     Dates: start: 20050101, end: 20090501

REACTIONS (12)
  - EMOTIONAL DISTRESS [None]
  - GALLBLADDER DISORDER [None]
  - CHOLECYSTITIS CHRONIC [None]
  - ABDOMINAL PAIN [None]
  - FEAR [None]
  - ANXIETY [None]
  - PROCEDURAL PAIN [None]
  - BILIARY DYSKINESIA [None]
  - PSYCHOLOGICAL TRAUMA [None]
  - ANHEDONIA [None]
  - DYSPEPSIA [None]
  - INJURY [None]
